FAERS Safety Report 5853943-6 (Version None)
Quarter: 2008Q3

REPORT INFORMATION
  Report Type: 
  Country: None (occurrence: None)
  Receive Date: 20080822
  Receipt Date: 20080818
  Transmission Date: 20090109
  Serious: Yes (Other)
  Sender: FDA-Public Use
  Company Number: B0530842A

PATIENT
  Age: 39 Year
  Sex: Male

DRUGS (2)
  1. ZYBAN [Suspect]
     Route: 048
     Dates: start: 20080501, end: 20080506
  2. PANTOZOL [Concomitant]
     Indication: STOMACH DISCOMFORT
     Route: 048

REACTIONS (4)
  - AGGRESSION [None]
  - AGITATION [None]
  - DISINHIBITION [None]
  - MANIA [None]
